FAERS Safety Report 8774235 (Version 4)
Quarter: 2012Q4

REPORT INFORMATION
  Report Type: 
  Country: JP (occurrence: JP)
  Receive Date: 20120907
  Receipt Date: 20121004
  Transmission Date: 20130627
  Serious: Yes (Hospitalization)
  Sender: FDA-Public Use
  Company Number: JP-PFIZER INC-2012217640

PATIENT
  Age: 76 Year
  Sex: Male
  Weight: 52.1 kg

DRUGS (6)
  1. VFEND [Suspect]
     Indication: BRONCHOPULMONARY ASPERGILLOSIS
     Dosage: 300 mg, 2x/day
     Route: 041
     Dates: start: 20120806, end: 20120806
  2. VFEND [Suspect]
     Dosage: 200 mg, 2x/day
     Route: 042
     Dates: start: 20120807, end: 20120902
  3. MAG-LAX [Concomitant]
     Indication: CONSTIPATION
     Dosage: 330 mg, 3x/day
     Route: 048
     Dates: start: 20120809
  4. POLAREZINC [Concomitant]
     Indication: GASTRITIS PROPHYLAXIS
     Dosage: 75 mg, 1x/day
     Route: 048
     Dates: start: 20120811
  5. MYSLEE [Concomitant]
     Indication: INSOMNIA
     Dosage: 5 mg once daily, as needed
     Route: 048
     Dates: start: 20120825
  6. RABEPRAZOLE [Concomitant]
     Route: 048

REACTIONS (1)
  - Interstitial lung disease [Recovering/Resolving]
